FAERS Safety Report 21674208 (Version 3)
Quarter: 2022Q4

REPORT INFORMATION
  Report Type: Spontaneous
  Country: FR (occurrence: FR)
  Receive Date: 20221202
  Receipt Date: 20221215
  Transmission Date: 20230112
  Serious: Yes (Death, Hospitalization, Other)
  Sender: FDA-Public Use
  Company Number: FR-SERVIER-S22012234

PATIENT

DRUGS (1)
  1. ONCASPAR [Suspect]
     Active Substance: PEGASPARGASE
     Indication: Acute lymphocytic leukaemia
     Dosage: 1000 IU/M2
     Route: 042
     Dates: start: 20221119, end: 20221119

REACTIONS (18)
  - Cardiac failure [Fatal]
  - Nervous system disorder [Not Recovered/Not Resolved]
  - Multiple organ dysfunction syndrome [Unknown]
  - Superior sagittal sinus thrombosis [Unknown]
  - Febrile neutropenia [Not Recovered/Not Resolved]
  - Hypertriglyceridaemia [Recovering/Resolving]
  - Pancytopenia [Not Recovered/Not Resolved]
  - Acute kidney injury [Recovering/Resolving]
  - Anuria [Not Recovered/Not Resolved]
  - Oliguria [Unknown]
  - Mucosal inflammation [Unknown]
  - Tachycardia [Unknown]
  - Encephalitis [Unknown]
  - Altered state of consciousness [Unknown]
  - Haematoma [Unknown]
  - Hypotension [Not Recovered/Not Resolved]
  - Hyperammonaemia [Not Recovered/Not Resolved]
  - Hyponatraemia [Unknown]

NARRATIVE: CASE EVENT DATE: 20220101
